FAERS Safety Report 6118412-7 (Version None)
Quarter: 2009Q1

REPORT INFORMATION
  Report Type: 
  Country: None (occurrence: None)
  Receive Date: 20090314
  Receipt Date: 20090217
  Transmission Date: 20090719
  Serious: No
  Sender: FDA-Public Use
  Company Number: US-ABBOTT-09P-163-0558015-00

PATIENT
  Sex: Female
  Weight: 54.48 kg

DRUGS (3)
  1. HUMIRA [Suspect]
     Indication: CROHN'S DISEASE
     Dosage: MID SEP
     Dates: start: 20080801, end: 20080901
  2. HUMIRA [Suspect]
     Dosage: MID SEP
     Dates: start: 20090217
  3. VICODIN [Concomitant]
     Indication: DRUG USE FOR UNKNOWN INDICATION

REACTIONS (3)
  - BRONCHITIS [None]
  - CROHN'S DISEASE [None]
  - SINUSITIS [None]
